FAERS Safety Report 23763233 (Version 1)
Quarter: 2024Q2

REPORT INFORMATION
  Report Type: Spontaneous
  Country: US (occurrence: None)
  Receive Date: 20240419
  Receipt Date: 20240419
  Transmission Date: 20240716
  Serious: Yes (Hospitalization)
  Sender: FDA-Public Use
  Company Number: None

PATIENT
  Age: 47 Year
  Sex: Male
  Weight: 56.7 kg

DRUGS (20)
  1. TACROLIMUS [Suspect]
     Active Substance: TACROLIMUS
     Indication: Lung transplant
     Dosage: FREQUENCY : TWICE A DAY;?
     Route: 048
     Dates: start: 20231127
  2. ATOVAQUONE [Concomitant]
     Dates: start: 20240207
  3. CALCIUM [Concomitant]
     Dates: start: 20231127
  4. FAMOTIDINE [Concomitant]
     Active Substance: FAMOTIDINE
     Dates: start: 20231127
  5. FLUCONAZOLE [Concomitant]
     Active Substance: FLUCONAZOLE
     Dates: start: 20231127, end: 20240318
  6. Granix 330 mcg/0.5 ml [Concomitant]
     Dates: start: 20240315, end: 20240322
  7. Metoprolol ER Succinate 100 mg [Concomitant]
     Dates: start: 20231127
  8. METOPROLOL SUCCINATE [Concomitant]
     Active Substance: METOPROLOL SUCCINATE
     Dates: start: 20240115
  9. Mg Plus Protein 133 mg [Concomitant]
     Dates: start: 20231127
  10. MIRTAZAPINE [Concomitant]
     Active Substance: MIRTAZAPINE
     Dates: start: 20240129, end: 20240212
  11. MYCOPHENOLATE MOFETIL [Concomitant]
     Active Substance: MYCOPHENOLATE MOFETIL
     Dates: start: 20231127, end: 20240123
  12. OMEPRAZOLE [Concomitant]
     Active Substance: OMEPRAZOLE
     Dates: start: 20240122, end: 20240125
  13. Prednisone 10 mg and 5 mg [Concomitant]
     Dates: start: 20231127
  14. PREVYMIS [Concomitant]
     Active Substance: LETERMOVIR
     Dates: start: 20240207
  15. SULFAMETHOXAZOLE\TRIMETHOPRIM [Concomitant]
     Active Substance: SULFAMETHOXAZOLE\TRIMETHOPRIM
     Dates: start: 20231127, end: 20240208
  16. Tab-a-vite with iron [Concomitant]
     Dates: start: 20231127
  17. TACROLIMUS [Concomitant]
     Active Substance: TACROLIMUS
     Dates: start: 20231127, end: 20240325
  18. TACROLIMUS [Concomitant]
     Active Substance: TACROLIMUS
     Dates: start: 20231127
  19. VALACYCLOVIR HYDROCHLORIDE [Concomitant]
     Active Substance: VALACYCLOVIR HYDROCHLORIDE
     Dates: start: 20240207
  20. Valganciclovir 450 mg [Concomitant]
     Dates: start: 20231127, end: 20240208

REACTIONS (1)
  - Intensive care [None]

NARRATIVE: CASE EVENT DATE: 20240412
